FAERS Safety Report 4826038-8 (Version None)
Quarter: 2005Q4

REPORT INFORMATION
  Report Type: 
  Country: None (occurrence: None)
  Receive Date: 20051111
  Receipt Date: 20051031
  Transmission Date: 20060501
  Serious: Yes (Hospitalization)
  Sender: FDA-Public Use
  Company Number: 2005AP05816

PATIENT
  Age: 58 Year
  Sex: Female

DRUGS (9)
  1. PULMICORT [Suspect]
     Route: 055
  2. BRICANYL [Suspect]
     Route: 065
  3. ARAVA [Suspect]
     Indication: RHEUMATOID ARTHRITIS
     Route: 048
     Dates: start: 20030708, end: 20050515
  4. METHOTREXATE [Suspect]
     Route: 065
  5. PREDNISOLONE [Suspect]
     Route: 065
  6. ROFECOXIB [Concomitant]
  7. RANITIDINE [Concomitant]
  8. FOLIC ACID [Concomitant]
  9. FISH OIL [Concomitant]

REACTIONS (2)
  - IMMUNOSUPPRESSION [None]
  - PNEUMONIA [None]
